FAERS Safety Report 4993632-3 (Version None)
Quarter: 2006Q2

REPORT INFORMATION
  Report Type: 
  Country: None (occurrence: None)
  Receive Date: 20060504
  Receipt Date: 20060504
  Transmission Date: 20061013
  Serious: Yes (Life-Threatening)
  Sender: FDA-Public Use
  Company Number: None

PATIENT
  Sex: Female
  Weight: 63.5 kg

DRUGS (2)
  1. HURRICAINE SPRAY 20%  , BEUTLICH LIP. PHARMACEUTICALS [Suspect]
     Indication: LOCAL ANAESTHESIA
     Dosage: 20% SPRAY X1 TOPICALLY
     Route: 061
     Dates: start: 20060401
  2. LIDOCAINE 2% [Suspect]
     Indication: LOCAL ANAESTHESIA
     Dosage: 2% NEBULIZE X 1 INHALATION
     Route: 055
     Dates: start: 20060401

REACTIONS (2)
  - BLOOD METHAEMOGLOBIN PRESENT [None]
  - CYANOSIS [None]
